FAERS Safety Report 10465066 (Version 4)
Quarter: 2015Q3

REPORT INFORMATION
  Report Type: Spontaneous
  Country: BR (occurrence: BR)
  Receive Date: 20140919
  Receipt Date: 20150715
  Transmission Date: 20151125
  Serious: Yes (Other)
  Sender: FDA-Public Use
  Company Number: BR-PFIZER INC-2014255638

PATIENT
  Age: 83 Year
  Sex: Male
  Weight: 61 kg

DRUGS (9)
  1. CAPILAREMA [Concomitant]
     Indication: VARICOSE VEIN
     Dosage: 1 TABLET OR CAPSULE - FORMULATION NOT SPECIFIED, DAILY
  2. ETNA [Concomitant]
     Active Substance: UNSPECIFIED INGREDIENT
     Indication: VARICOSE VEIN
     Dosage: UNK
     Dates: start: 2013
  3. LYRICA [Suspect]
     Active Substance: PREGABALIN
     Indication: PAIN IN EXTREMITY
     Dosage: 75 MG, 2X/DAY (EVERY 12 HOURS)
     Route: 048
     Dates: start: 20150626, end: 2015
  4. VENLAXIN [Concomitant]
     Indication: OSTEOARTHRITIS
     Dosage: 1 TABLET OR CAPSULE - FORMULATION NOT SPECIFIED, DAILY
     Dates: start: 2011
  5. RIVOTRIL [Concomitant]
     Active Substance: CLONAZEPAM
     Indication: SLEEP DISORDER
     Dosage: 1 TABLET OR CAPSULE - FORMULATION NOT SPECIFIED, DAILY
     Dates: start: 2011
  6. VASOGARD [Concomitant]
     Active Substance: CILOSTAZOL
     Indication: VARICOSE VEIN
     Dosage: UNK
     Dates: start: 2013
  7. CALCIUM [Concomitant]
     Active Substance: CALCIUM
     Indication: CALCIUM DEFICIENCY
     Dosage: 1 TABLET OR CAPSULE - FORMULATION NOT SPECIFIED, DAILY
  8. TAMSULOSIN [Concomitant]
     Active Substance: TAMSULOSIN
     Indication: PROSTATIC DISORDER
     Dosage: 1 TABLET OR CAPSULE - FORMULATION NOT SPECIFIED, 2X/DAY
  9. LYRICA [Suspect]
     Active Substance: PREGABALIN
     Indication: OSTEOARTHRITIS
     Dosage: 75 MG, 2X/DAY
     Route: 048
     Dates: start: 2007

REACTIONS (2)
  - Gastrointestinal disorder [Unknown]
  - Cataract [Recovered/Resolved]

NARRATIVE: CASE EVENT DATE: 2010
